FAERS Safety Report 5928670-7 (Version None)
Quarter: 2008Q4

REPORT INFORMATION
  Report Type: 
  Country: None (occurrence: None)
  Receive Date: 20081023
  Receipt Date: 20081016
  Transmission Date: 20090506
  Serious: No
  Sender: FDA-Public Use
  Company Number: US-B.I. PHARMACEUTICALS,INC./RIDGEFIELD-2008-BP-16057BP

PATIENT
  Sex: Male

DRUGS (3)
  1. SPIRIVA [Suspect]
     Indication: CHRONIC OBSTRUCTIVE PULMONARY DISEASE
     Dosage: 18MCG
     Route: 055
     Dates: start: 20080801
  2. ALEVE [Concomitant]
     Indication: BACK PAIN
     Route: 048
     Dates: start: 20070101
  3. ALEVE [Concomitant]
     Indication: CHEST PAIN

REACTIONS (1)
  - POLLAKIURIA [None]
